FAERS Safety Report 5528677-8 (Version None)
Quarter: 2007Q4

REPORT INFORMATION
  Report Type: 
  Country: None (occurrence: None)
  Receive Date: 20071129
  Receipt Date: 20071126
  Transmission Date: 20080405
  Serious: Yes (Death, Other)
  Sender: FDA-Public Use
  Company Number: PHBS2007US19848

PATIENT
  Age: 66 Year
  Sex: Male

DRUGS (10)
  1. CYCLOSPORINE [Suspect]
     Indication: HEART TRANSPLANT
     Dosage: 150 MG/D
     Route: 065
  2. PREDNISONE TAB [Concomitant]
     Indication: HEART TRANSPLANT
     Dosage: 30 MG/D
     Route: 048
  3. PREDNISONE TAB [Concomitant]
     Dosage: 7.5 MG/D
     Route: 048
  4. SIMVASTATIN [Suspect]
     Indication: HYPERLIPIDAEMIA
     Dosage: 30 MG/D
  5. SIMVASTATIN [Suspect]
     Dosage: 60 MG/D
  6. COLCHICINE [Suspect]
     Indication: GOUT
     Dosage: 1.2 MG/D
  7. PROPOFOL [Suspect]
     Dosage: 30 UG/KG/MIN
  8. MYCOPHENOLATE MOFETIL [Concomitant]
     Indication: HEART TRANSPLANT
     Dosage: 500 MG/D
     Route: 065
  9. IMURAN [Concomitant]
     Indication: HEART TRANSPLANT
  10. METHYLPREDNISOLONE [Suspect]
     Dosage: 500 MG/D
     Route: 042

REACTIONS (31)
  - BLOOD CREATINE PHOSPHOKINASE INCREASED [None]
  - BLOOD URIC ACID INCREASED [None]
  - BODY TEMPERATURE INCREASED [None]
  - CARDIAC FAILURE CONGESTIVE [None]
  - CHRONIC OBSTRUCTIVE PULMONARY DISEASE [None]
  - DIABETES MELLITUS [None]
  - DIABETIC NEUROPATHY [None]
  - DIASTOLIC DYSFUNCTION [None]
  - GAIT DISTURBANCE [None]
  - GOUT [None]
  - GOUTY TOPHUS [None]
  - GRIP STRENGTH DECREASED [None]
  - HAEMODIALYSIS [None]
  - HYPERLIPIDAEMIA [None]
  - HYPOREFLEXIA [None]
  - MECHANICAL VENTILATION [None]
  - MITOCHONDRIAL MYOPATHY ACQUIRED [None]
  - MUSCLE DISORDER [None]
  - MUSCLE NECROSIS [None]
  - MUSCULAR WEAKNESS [None]
  - MYALGIA [None]
  - MYOPATHY TOXIC [None]
  - OLIGURIA [None]
  - PNEUMONIA [None]
  - RESPIRATORY DISTRESS [None]
  - RESPIRATORY RATE INCREASED [None]
  - RHABDOMYOLYSIS [None]
  - SEPTIC SHOCK [None]
  - SLEEP APNOEA SYNDROME [None]
  - URINARY CASTS [None]
  - WEIGHT DECREASED [None]
